FAERS Safety Report 8956089 (Version 1)
Quarter: 2012Q4

REPORT INFORMATION
  Report Type: 
  Country: TR (occurrence: TR)
  Receive Date: 20121210
  Receipt Date: 20121210
  Transmission Date: 20130627
  Serious: Yes (Life-Threatening, Hospitalization)
  Sender: FDA-Public Use
  Company Number: TR-ASTRAZENECA-2012SE91497

PATIENT
  Age: 42 Year
  Sex: Male

DRUGS (3)
  1. QUETIAPINE [Suspect]
     Indication: AFFECTIVE DISORDER
     Route: 048
  2. FLUOXETINE [Interacting]
     Indication: AFFECTIVE DISORDER
  3. UNSPECIFIED INGREDIENT [Interacting]
     Indication: HAEMORRHOIDS

REACTIONS (2)
  - Drug interaction [Recovered/Resolved]
  - Serotonin syndrome [Recovered/Resolved]
